FAERS Safety Report 4485850-8 (Version None)
Quarter: 2004Q4

REPORT INFORMATION
  Report Type: 
  Country: None (occurrence: None)
  Receive Date: 20040921
  Receipt Date: 20031003
  Transmission Date: 20050328
  Serious: Yes (Hospitalization)
  Sender: FDA-Public Use
  Company Number: 163-20785-03100121

PATIENT
  Age: 66 Year
  Sex: Female
  Weight: 82.1011 kg

DRUGS (2)
  1. THALOMID [Suspect]
     Indication: BREAST CANCER
     Dosage: 200 MG, DAILY, ORAL
     Route: 048
     Dates: start: 20030801, end: 20030915
  2. XELODA [Suspect]
     Indication: BREAST CANCER
     Dosage: 3500 MG, DAILY,
     Dates: start: 20030801, end: 20030902

REACTIONS (14)
  - ASPARTATE AMINOTRANSFERASE INCREASED [None]
  - ASTHENIA [None]
  - BLOOD ALBUMIN DECREASED [None]
  - BLOOD CALCIUM DECREASED [None]
  - BLOOD CHLORIDE DECREASED [None]
  - BLOOD GLUCOSE DECREASED [None]
  - BLOOD POTASSIUM DECREASED [None]
  - BLOOD UREA INCREASED [None]
  - DEHYDRATION [None]
  - DIARRHOEA [None]
  - NAUSEA [None]
  - PAIN [None]
  - PALMAR-PLANTAR ERYTHRODYSAESTHESIA SYNDROME [None]
  - PROTEIN TOTAL DECREASED [None]
